FAERS Safety Report 5550995-8 (Version None)
Quarter: 2007Q4

REPORT INFORMATION
  Report Type: 
  Country: None (occurrence: None)
  Receive Date: 20071128
  Receipt Date: 20070820
  Transmission Date: 20080405
  Serious: Yes (Other)
  Sender: FDA-Public Use
  Company Number: 2006088325

PATIENT
  Sex: Male

DRUGS (5)
  1. LIPITOR [Suspect]
     Dosage: 10 MG (1 IN 1 D)
     Dates: start: 20021121, end: 20060801
  2. ACETYLSALICYLIC ACID SRT [Concomitant]
  3. TAMSULOSIN HYDROCHLORIDE (TAMSULOSIN HYDROCHLORIDE) [Concomitant]
  4. ATENOLOL [Concomitant]
  5. LAMICTAL [Concomitant]

REACTIONS (7)
  - AMNESIA [None]
  - BALANCE DISORDER [None]
  - CONFUSIONAL STATE [None]
  - DEPRESSION [None]
  - FATIGUE [None]
  - IRRITABILITY [None]
  - NEUROPATHY PERIPHERAL [None]
